FAERS Safety Report 4385030-0 (Version None)
Quarter: 2004Q2

REPORT INFORMATION
  Report Type: 
  Country: None (occurrence: None)
  Receive Date: 20040625
  Receipt Date: 20040511
  Transmission Date: 20050107
  Serious: Yes (Hospitalization, Disabling, Other)
  Sender: FDA-Public Use
  Company Number: BE-GLAXOSMITHKLINE-B0321989B

PATIENT
  Age: 49 Year
  Sex: Female
  Weight: 71 kg

DRUGS (7)
  1. PAROXETINE HCL [Suspect]
     Dosage: 20MG PER DAY
     Route: 048
     Dates: start: 19980901, end: 20031223
  2. ALPHARIX [Concomitant]
     Indication: PROPHYLAXIS
     Route: 030
     Dates: start: 20031021, end: 20031021
  3. AMLOR [Concomitant]
     Dosage: 5MG PER DAY
     Route: 048
     Dates: start: 19980501
  4. PRAXILENE [Concomitant]
     Dosage: 600MG PER DAY
     Route: 048
     Dates: start: 19980501
  5. SINTROM [Concomitant]
     Dates: start: 19980501, end: 20031201
  6. COZAAR [Concomitant]
     Indication: HYPERTENSION
  7. NUROFEN [Concomitant]
     Indication: DRUG USE FOR UNKNOWN INDICATION
     Dates: end: 20031201

REACTIONS (5)
  - BLOOD CREATININE INCREASED [None]
  - BLOOD LACTATE DEHYDROGENASE INCREASED [None]
  - CONTUSION [None]
  - HAEMATOMA [None]
  - IDIOPATHIC THROMBOCYTOPENIC PURPURA [None]
